FAERS Safety Report 21944317 (Version 1)
Quarter: 2023Q1

REPORT INFORMATION
  Report Type: Report from Study
  Country: IT (occurrence: IT)
  Receive Date: 20230202
  Receipt Date: 20230202
  Transmission Date: 20230417
  Serious: Yes (Hospitalization)
  Sender: FDA-Public Use
  Company Number: IT-EXELIXIS-XL18422058300

PATIENT

DRUGS (15)
  1. CABOZANTINIB [Suspect]
     Active Substance: CABOZANTINIB
     Indication: Metastatic renal cell carcinoma
     Dosage: 60 MG, QD
     Route: 048
     Dates: start: 20210909
  2. CABOZANTINIB [Suspect]
     Active Substance: CABOZANTINIB
     Dosage: 40 MG
  3. ATEZOLIZUMAB [Suspect]
     Active Substance: ATEZOLIZUMAB
     Indication: Metastatic renal cell carcinoma
     Dosage: 1200 MG, Q3WEEKS
     Route: 041
     Dates: start: 20210909
  4. OXYCODONE [Concomitant]
     Active Substance: OXYCODONE
     Indication: Musculoskeletal pain
     Dosage: 5 MG, BID
     Route: 048
     Dates: start: 20210920
  5. NALOXONE [Concomitant]
     Active Substance: NALOXONE
     Indication: Musculoskeletal pain
     Dosage: 2.5 MG, TID
     Route: 048
     Dates: start: 20210920
  6. MORPHINE SULFATE [Concomitant]
     Active Substance: MORPHINE SULFATE
     Indication: Analgesic therapy
     Dosage: 10 MG, 1 IN 1 AS REQUIRED
     Route: 048
     Dates: start: 20210924
  7. POLYETHYLENE GLYCOLS [Concomitant]
     Active Substance: POLYETHYLENE GLYCOLS
     Indication: Laxative supportive care
     Dosage: 1 OTHER, 1 IN 1 AS REQUIRED
     Route: 048
     Dates: start: 20210924
  8. PREDNISONE [Concomitant]
     Active Substance: PREDNISONE
     Indication: Steroid therapy
     Dosage: 5 MG, QD
     Route: 048
     Dates: start: 20211023
  9. NEBIVOLOL [Concomitant]
     Active Substance: NEBIVOLOL
     Indication: Hypertension
     Dosage: 5 MG, QD
     Route: 048
     Dates: start: 20211023
  10. AMLODIPINE BESYLATE [Concomitant]
     Active Substance: AMLODIPINE BESYLATE
     Indication: Hypertension
     Dosage: 10 MG, QD
     Route: 048
     Dates: start: 20211019
  11. GENTAMICIN [Concomitant]
     Active Substance: GENTAMICIN
     Indication: Palmar-plantar erythrodysaesthesia syndrome
     Dosage: 1 OTHER, QD
     Route: 061
     Dates: start: 20220204
  12. LOPERAMIDE [Concomitant]
     Active Substance: LOPERAMIDE
     Indication: Diarrhoea
     Dosage: 2 MG, 1 IN 1 AS REQUIRED
     Route: 048
     Dates: start: 20220225
  13. YOVIS [Concomitant]
     Indication: Diarrhoea
     Dosage: 1 OTHER, Q2WEEKS
     Route: 048
     Dates: start: 20220225
  14. ENOXAPARIN [Concomitant]
     Active Substance: ENOXAPARIN
     Indication: Anticoagulant therapy
     Dosage: 4000 IU, QD
     Route: 058
     Dates: start: 20220409
  15. PREDNISONE [Concomitant]
     Active Substance: PREDNISONE

REACTIONS (2)
  - Immune-mediated enterocolitis [Recovered/Resolved]
  - Diarrhoea [Recovered/Resolved]

NARRATIVE: CASE EVENT DATE: 20220328
